FAERS Safety Report 7883379-8 (Version None)
Quarter: 2011Q4

REPORT INFORMATION
  Report Type: 
  Country: None (occurrence: None)
  Receive Date: 20111102
  Receipt Date: 20111102
  Transmission Date: 20120403
  Serious: Yes (Other)
  Sender: FDA-Public Use
  Company Number: None

PATIENT
  Age: 56 Year
  Sex: Male
  Weight: 103.41 kg

DRUGS (1)
  1. SEROQUEL [Suspect]
     Indication: CHOLECYSTECTOMY
     Dosage: 400 MG
     Dates: start: 20060306, end: 20100131

REACTIONS (2)
  - MALAISE [None]
  - CHOLECYSTECTOMY [None]
